FAERS Safety Report 13062143 (Version 1)
Quarter: 2016Q4

REPORT INFORMATION
  Report Type: Spontaneous
  Country: FR (occurrence: FR)
  Receive Date: 20161226
  Receipt Date: 20161226
  Transmission Date: 20170207
  Serious: Yes (Death)
  Sender: FDA-Public Use
  Company Number: FR-LUNDBECK-DKLU2024419

PATIENT
  Age: 75 Year
  Sex: Male

DRUGS (14)
  1. TEGRETOL [Suspect]
     Active Substance: CARBAMAZEPINE
     Route: 048
     Dates: start: 20161016, end: 20161018
  2. KEPPRA [Suspect]
     Active Substance: LEVETIRACETAM
     Route: 040
     Dates: start: 20161016, end: 20161016
  3. KEPPRA [Suspect]
     Active Substance: LEVETIRACETAM
     Route: 040
     Dates: start: 20161024, end: 20161025
  4. HYPNOVEL [Suspect]
     Active Substance: MIDAZOLAM\MIDAZOLAM HYDROCHLORIDE
     Route: 042
     Dates: start: 20161018, end: 20161018
  5. TEGRETOL [Suspect]
     Active Substance: CARBAMAZEPINE
     Indication: PRODUCT USED FOR UNKNOWN INDICATION
     Route: 065
     Dates: start: 20161013
  6. KEPPRA [Suspect]
     Active Substance: LEVETIRACETAM
     Indication: PRODUCT USED FOR UNKNOWN INDICATION
     Route: 040
     Dates: start: 20161013
  7. RIVOTRIL [Suspect]
     Active Substance: CLONAZEPAM
     Indication: PRODUCT USED FOR UNKNOWN INDICATION
     Route: 042
     Dates: start: 20161016, end: 20161018
  8. HYPNOVEL [Suspect]
     Active Substance: MIDAZOLAM\MIDAZOLAM HYDROCHLORIDE
     Route: 042
     Dates: start: 20161017, end: 20161017
  9. HYPNOVEL [Suspect]
     Active Substance: MIDAZOLAM\MIDAZOLAM HYDROCHLORIDE
     Route: 042
     Dates: start: 20161019, end: 20161023
  10. HYPNOVEL [Suspect]
     Active Substance: MIDAZOLAM\MIDAZOLAM HYDROCHLORIDE
     Route: 042
     Dates: start: 20161024, end: 20161025
  11. PRODILANTIN [Suspect]
     Active Substance: FOSPHENYTOIN SODIUM
     Indication: PRODUCT USED FOR UNKNOWN INDICATION
     Route: 042
     Dates: start: 20161013, end: 20161016
  12. HYPNOVEL [Suspect]
     Active Substance: MIDAZOLAM\MIDAZOLAM HYDROCHLORIDE
     Indication: PRODUCT USED FOR UNKNOWN INDICATION
     Route: 042
     Dates: start: 20161017, end: 20161017
  13. URBANYL [Suspect]
     Active Substance: CLOBAZAM
     Indication: PRODUCT USED FOR UNKNOWN INDICATION
     Route: 048
     Dates: start: 20161017, end: 20161018
  14. KEPPRA [Suspect]
     Active Substance: LEVETIRACETAM
     Route: 040
     Dates: start: 20161017, end: 20161018

REACTIONS (3)
  - Drug interaction [Fatal]
  - Drug ineffective [Fatal]
  - Status epilepticus [Fatal]

NARRATIVE: CASE EVENT DATE: 20161013
